FAERS Safety Report 6031065-1 (Version None)
Quarter: 2009Q1

REPORT INFORMATION
  Report Type: 
  Country: None (occurrence: None)
  Receive Date: 20090108
  Receipt Date: 20081231
  Transmission Date: 20090719
  Serious: Yes (Hospitalization)
  Sender: FDA-Public Use
  Company Number: MY-BRISTOL-MYERS SQUIBB COMPANY-14462048

PATIENT
  Age: 28 Year
  Sex: Female

DRUGS (1)
  1. GLUCOVANCE [Suspect]
     Dosage: 1 DOSAGE FORM = (GLYBURIDE + METFORMIN HYDROCHLORIDE 5 MG/500 MG)

REACTIONS (2)
  - EXTREMITY CONTRACTURE [None]
  - MASKED FACIES [None]
